FAERS Safety Report 23287954 (Version 1)
Quarter: 2023Q4

REPORT INFORMATION
  Report Type: Spontaneous
  Country: US (occurrence: US)
  Receive Date: 20231212
  Receipt Date: 20231212
  Transmission Date: 20240110
  Serious: Yes (Other)
  Sender: FDA-Public Use
  Company Number: US-MLMSERVICE-20231121-4678360-1

PATIENT
  Age: 66 Year
  Sex: Female

DRUGS (1)
  1. ZOLEDRONIC ACID [Suspect]
     Active Substance: ZOLEDRONIC ACID
     Indication: Osteoporosis
     Dosage: 5 MILLIGRAM
     Route: 042

REACTIONS (5)
  - Synovitis [Recovering/Resolving]
  - Iris adhesions [Recovered/Resolved]
  - Acute phase reaction [Recovering/Resolving]
  - Iridocyclitis [Recovering/Resolving]
  - Episcleritis [Recovering/Resolving]
